FAERS Safety Report 20303558 (Version 1)
Quarter: 2022Q1

REPORT INFORMATION
  Report Type: Spontaneous
  Country: US (occurrence: None)
  Receive Date: 20220105
  Receipt Date: 20220105
  Transmission Date: 20220424
  Serious: Yes (Other)
  Sender: FDA-Public Use
  Company Number: None

PATIENT
  Sex: Male

DRUGS (3)
  1. HUMIRA [Suspect]
     Active Substance: ADALIMUMAB
     Indication: Psoriasis
     Dosage: 80/0.4 MG/ML + 40MG/0.4ML ? RX1: INJECT 80 MG UNDER THE SKIN (SUBCUTANEOUS INJECTION) ON DAY 1, THEN
     Route: 058
     Dates: start: 20210302
  2. HUMIRA [Suspect]
     Active Substance: ADALIMUMAB
     Dosage: OTHER FREQUENCY : DAY 8;?
     Route: 058
  3. HUMIRA [Suspect]
     Active Substance: ADALIMUMAB
     Dosage: OTHER QUANTITY : 40/0.4 MG/ML;?OTHER FREQUENCY : DAY 22;?
     Route: 058

REACTIONS (2)
  - Cardiac operation [None]
  - Therapy interrupted [None]
